FAERS Safety Report 6825349-4 (Version None)
Quarter: 2010Q3

REPORT INFORMATION
  Report Type: 
  Country: None (occurrence: None)
  Receive Date: 20100708
  Receipt Date: 20070522
  Transmission Date: 20110219
  Serious: No
  Sender: FDA-Public Use
  Company Number: US-PFIZER INC-2007000267

PATIENT

DRUGS (4)
  1. VARENICLINE [Suspect]
  2. DIFLUCAN [Interacting]
  3. LEVAQUIN [Interacting]
  4. CAFFEINE [Interacting]

REACTIONS (10)
  - ARTHRALGIA [None]
  - BACK PAIN [None]
  - DRUG INTERACTION [None]
  - FUNGAL INFECTION [None]
  - HEART RATE INCREASED [None]
  - INSOMNIA [None]
  - NAUSEA [None]
  - PAIN [None]
  - POLYURIA [None]
  - URINARY TRACT INFECTION [None]
